FAERS Safety Report 4282974-5 (Version None)
Quarter: 2004Q1

REPORT INFORMATION
  Report Type: 
  Country: None (occurrence: None)
  Receive Date: 20040130
  Receipt Date: 20040121
  Transmission Date: 20041129
  Serious: Yes (Other)
  Sender: FDA-Public Use
  Company Number: PHBS2004GB01126

PATIENT
  Age: 79 Year
  Sex: Female

DRUGS (2)
  1. FAMCICLOVIR [Suspect]
     Indication: HERPES ZOSTER
     Route: 048
  2. PREDNISOLONE [Suspect]
     Indication: ASTHMA
     Dosage: 2 MG/D
     Route: 065

REACTIONS (3)
  - HORNER'S SYNDROME [None]
  - PAIN IN EXTREMITY [None]
  - PARESIS [None]
